FAERS Safety Report 16664364 (Version 2)
Quarter: 2019Q3

REPORT INFORMATION
  Report Type: Report from Study
  Country: US (occurrence: US)
  Receive Date: 20190802
  Receipt Date: 20190827
  Transmission Date: 20191004
  Serious: Yes (Other)
  Sender: FDA-Public Use
  Company Number: US-BIOGEN-2019BI00768067

PATIENT
  Age: 47 Year
  Sex: Female

DRUGS (2)
  1. SPINRAZA [Suspect]
     Active Substance: NUSINERSEN
     Indication: SPINAL MUSCULAR ATROPHY
     Dosage: FIRST LOADING DOSE
     Route: 037
     Dates: start: 20190121
  2. SPINRAZA [Suspect]
     Active Substance: NUSINERSEN
     Dosage: FIRST MAINTENANCE DOSE
     Route: 037
     Dates: start: 20190722

REACTIONS (2)
  - Blood glucose increased [Not Recovered/Not Resolved]
  - Muscle spasms [Unknown]

NARRATIVE: CASE EVENT DATE: 20190121
